FAERS Safety Report 9314202 (Version 2)
Quarter: 2013Q2

REPORT INFORMATION
  Report Type: Spontaneous
  Country: US (occurrence: US)
  Receive Date: 20130529
  Receipt Date: 20130605
  Transmission Date: 20140414
  Serious: Yes (Death)
  Sender: FDA-Public Use
  Company Number: US-PFIZER INC-2008153671

PATIENT
  Age: 20 Year
  Sex: Female

DRUGS (6)
  1. IBUPROFEN [Suspect]
     Dosage: UNK
     Route: 065
  2. TRAMADOL HCL [Suspect]
     Dosage: UNK
     Route: 065
  3. ETODOLAC [Suspect]
     Dosage: UNK
     Route: 065
  4. ZOLPIDEM TARTRATE [Suspect]
     Dosage: UNK
     Route: 065
  5. OXYCODONE [Suspect]
     Dosage: UNK
     Route: 065
  6. PHENTERMINE [Suspect]
     Dosage: UNK
     Route: 065

REACTIONS (3)
  - Toxicity to various agents [Fatal]
  - Cardiac arrest [Fatal]
  - Respiratory arrest [Fatal]
